FAERS Safety Report 6135437-6 (Version None)
Quarter: 2009Q1

REPORT INFORMATION
  Report Type: 
  Country: None (occurrence: None)
  Receive Date: 20090327
  Receipt Date: 20090323
  Transmission Date: 20090719
  Serious: Yes (Other)
  Sender: FDA-Public Use
  Company Number: AU-JNJCH-2009008251

PATIENT
  Sex: Female

DRUGS (1)
  1. LISTERINE TOOTHPASTE UNSPECIFIED [Suspect]
     Indication: DENTAL DISORDER PROPHYLAXIS
     Dosage: TEXT:ONCE
     Route: 048
     Dates: start: 20090301, end: 20090301

REACTIONS (3)
  - EXPIRED DRUG ADMINISTERED [None]
  - LIP SWELLING [None]
  - PRURITUS [None]
